FAERS Safety Report 7185351-2 (Version None)
Quarter: 2010Q4

REPORT INFORMATION
  Report Type: 
  Country: None (occurrence: None)
  Receive Date: 20101222
  Receipt Date: 20101214
  Transmission Date: 20110411
  Serious: Yes (Other)
  Sender: FDA-Public Use
  Company Number: GB-PFIZER INC-2010137363

PATIENT
  Age: 58 Year
  Sex: Male

DRUGS (5)
  1. LYRICA [Suspect]
     Indication: GENERALISED ANXIETY DISORDER
     Dosage: 150 MG, 2X/DAY
     Route: 048
     Dates: start: 20101027
  2. QUETIAPINE [Concomitant]
     Indication: ANXIETY
     Dosage: 45 MG, 1X/DAY AT NIGHT
     Route: 048
  3. QUETIAPINE [Concomitant]
     Indication: PSYCHOTIC DISORDER
  4. VENLAFAXINE [Concomitant]
     Indication: DEPRESSION
     Dosage: 150 MG, 1X/DAY IN MORNING
     Route: 048
  5. VENLAFAXINE [Concomitant]
     Indication: ANXIETY

REACTIONS (2)
  - ATAXIA [None]
  - DISINHIBITION [None]
